FAERS Safety Report 6880841-1 (Version None)
Quarter: 2010Q3

REPORT INFORMATION
  Report Type: 
  Country: None (occurrence: None)
  Receive Date: 20100728
  Receipt Date: 20100721
  Transmission Date: 20110219
  Serious: Yes (Hospitalization, Congenital Anomaly)
  Sender: FDA-Public Use
  Company Number: FR-GILEAD-2010-0030572

PATIENT
  Sex: Female
  Weight: 3.42 kg

DRUGS (4)
  1. TRUVADA [Suspect]
     Indication: HIV INFECTION
     Dates: start: 20090201
  2. KALETRA [Concomitant]
     Indication: HIV INFECTION
     Dates: start: 20090201
  3. EPIVIR [Concomitant]
     Dates: start: 20100326
  4. AZT [Concomitant]
     Dates: start: 20100324

REACTIONS (4)
  - ATRIAL SEPTAL DEFECT [None]
  - GASTROINTESTINAL DISORDER [None]
  - RIGHT VENTRICULAR HYPERTROPHY [None]
  - SUBILEUS [None]
